FAERS Safety Report 5493929-7 (Version None)
Quarter: 2007Q4

REPORT INFORMATION
  Report Type: 
  Country: None (occurrence: None)
  Receive Date: 20071023
  Receipt Date: 20071017
  Transmission Date: 20080405
  Serious: Yes (Hospitalization)
  Sender: FDA-Public Use
  Company Number: DE-MERCK-0710DEU00373

PATIENT
  Sex: Male

DRUGS (10)
  1. JANUVIA [Suspect]
     Indication: TYPE 2 DIABETES MELLITUS
     Route: 048
     Dates: start: 20070801, end: 20070925
  2. PIOGLITAZONE HYDROCHLORIDE [Concomitant]
     Route: 048
  3. ALLOPURINOL [Concomitant]
     Indication: GOUT
     Route: 065
  4. METOCLOPRAMIDE [Concomitant]
     Route: 065
  5. BENAZEPRIL HYDROCHLORIDE AND HYDROCHLOROTHIAZIDE [Concomitant]
     Route: 048
  6. FUROSEMIDE [Concomitant]
     Route: 048
  7. CARVEDILOL [Concomitant]
     Route: 065
  8. ASPIRIN [Concomitant]
     Route: 048
  9. VYTORIN [Concomitant]
     Route: 048
     Dates: end: 20070915
  10. AZATHIOPRINE [Concomitant]
     Route: 065
     Dates: start: 19970101

REACTIONS (5)
  - ASTHENIA [None]
  - DYSURIA [None]
  - GOUT [None]
  - HEADACHE [None]
  - PANCYTOPENIA [None]
